FAERS Safety Report 7971520-8 (Version None)
Quarter: 2011Q4

REPORT INFORMATION
  Report Type: 
  Country: None (occurrence: None)
  Receive Date: 20111212
  Receipt Date: 20111128
  Transmission Date: 20120403
  Serious: Yes (Other)
  Sender: FDA-Public Use
  Company Number: US-ELI_LILLY_AND_COMPANY-US201111003873

PATIENT
  Age: 67 Year
  Sex: Female

DRUGS (3)
  1. CYMBALTA [Suspect]
     Indication: FIBROMYALGIA
     Dosage: 30 MG, QD
     Dates: start: 20111001
  2. LISINOPRIL [Concomitant]
  3. PROPRANOLOL [Concomitant]

REACTIONS (9)
  - EXTRASYSTOLES [None]
  - INSOMNIA [None]
  - TREMOR [None]
  - FATIGUE [None]
  - HEART RATE INCREASED [None]
  - BLOOD PRESSURE INCREASED [None]
  - SYNCOPE [None]
  - VENTRICULAR ARRHYTHMIA [None]
  - THINKING ABNORMAL [None]
